FAERS Safety Report 5375798-9 (Version None)
Quarter: 2007Q2

REPORT INFORMATION
  Report Type: 
  Country: None (occurrence: None)
  Receive Date: 20070627
  Receipt Date: 20070605
  Transmission Date: 20071010
  Serious: Yes (Other)
  Sender: FDA-Public Use
  Company Number: US200706000551

PATIENT
  Age: 62 Year
  Sex: Female
  Weight: 79.8 kg

DRUGS (15)
  1. GEMZAR [Suspect]
     Indication: LUNG ADENOCARCINOMA STAGE IV
     Dates: start: 20061211, end: 20070305
  2. ALIMTA [Suspect]
     Indication: LUNG ADENOCARCINOMA STAGE IV
     Dosage: 915 MG,
     Dates: start: 20070518
  3. CARBOPLATIN [Concomitant]
  4. FOLIC ACID [Concomitant]
  5. VITAMIN B12 [Concomitant]
  6. DECADRON /CAN/ (DEXAMETHASONE) [Concomitant]
  7. AMBIEN [Concomitant]
  8. ATENOLOL [Concomitant]
  9. DUONEB [Concomitant]
  10. EMEND [Concomitant]
  11. K-DUR 10 [Concomitant]
  12. LASIX [Concomitant]
  13. LEXAPRO [Concomitant]
  14. LORTAB [Concomitant]
  15. OXYGEN (OXYGEN) [Concomitant]

REACTIONS (13)
  - BACTERIA URINE IDENTIFIED [None]
  - BLOOD PRESSURE SYSTOLIC DECREASED [None]
  - CARDIAC FAILURE CONGESTIVE [None]
  - CHILLS [None]
  - FULL BLOOD COUNT DECREASED [None]
  - MALIGNANT NEOPLASM PROGRESSION [None]
  - NAUSEA [None]
  - NIGHT SWEATS [None]
  - PNEUMONIA [None]
  - PULMONARY HYPERTENSION [None]
  - RASH MACULAR [None]
  - THROMBOCYTOPENIA [None]
  - URINE OUTPUT DECREASED [None]
